FAERS Safety Report 23268337 (Version 1)
Quarter: 2023Q4

REPORT INFORMATION
  Report Type: Other
  Country: DK (occurrence: DK)
  Receive Date: 20231206
  Receipt Date: 20231206
  Transmission Date: 20240109
  Serious: Yes (Life-Threatening, Other)
  Sender: FDA-Public Use
  Company Number: None

PATIENT
  Age: 25 Year
  Sex: Female
  Weight: 62 kg

DRUGS (4)
  1. TACROLIMUS [Suspect]
     Active Substance: TACROLIMUS
     Indication: Solid organ transplant rejection
     Route: 048
     Dates: start: 20200918
  2. METRONIDAZOLE [Suspect]
     Active Substance: METRONIDAZOLE
     Indication: Infection
     Route: 042
     Dates: start: 20231013
  3. MYFENAX [Concomitant]
     Active Substance: MYCOPHENOLATE MOFETIL
     Indication: Solid organ transplant rejection
     Dosage: UNK UNK, UNKNOWN FREQ.
     Route: 065
     Dates: start: 20190219
  4. PENICILLIN V POTASSIUM [Concomitant]
     Active Substance: PENICILLIN V POTASSIUM
     Indication: Pharyngitis
     Dosage: UNK UNK, UNKNOWN FREQ.
     Route: 065
     Dates: start: 20231011, end: 20231020

REACTIONS (2)
  - Renal impairment [Unknown]
  - Acute kidney injury [Recovered/Resolved]

NARRATIVE: CASE EVENT DATE: 20231013
